FAERS Safety Report 5925271-1 (Version None)
Quarter: 2008Q3

REPORT INFORMATION
  Report Type: 
  Country: None (occurrence: None)
  Receive Date: 20080909
  Receipt Date: 20071010
  Transmission Date: 20090109
  Serious: No
  Sender: FDA-Public Use
  Company Number: 163-20785-07090429

PATIENT
  Age: 57 Year
  Sex: Male

DRUGS (4)
  1. THALOMID [Suspect]
     Indication: MULTIPLE MYELOMA
     Dosage: 200 MG, 4 IN 1 D, ORAL : 200 MG, 1 IN 1 D, ORAL : 50 MG, 1 IN 1 D, ORAL : 100 MG, 1 IN 1 D, ORAL
     Route: 048
     Dates: start: 20070601, end: 20070101
  2. THALOMID [Suspect]
     Indication: MULTIPLE MYELOMA
     Dosage: 200 MG, 4 IN 1 D, ORAL : 200 MG, 1 IN 1 D, ORAL : 50 MG, 1 IN 1 D, ORAL : 100 MG, 1 IN 1 D, ORAL
     Route: 048
     Dates: start: 20061001, end: 20070401
  3. THALOMID [Suspect]
     Indication: MULTIPLE MYELOMA
     Dosage: 200 MG, 4 IN 1 D, ORAL : 200 MG, 1 IN 1 D, ORAL : 50 MG, 1 IN 1 D, ORAL : 100 MG, 1 IN 1 D, ORAL
     Route: 048
     Dates: start: 20070401, end: 20070601
  4. THALOMID [Suspect]
     Indication: MULTIPLE MYELOMA
     Dosage: 200 MG, 4 IN 1 D, ORAL : 200 MG, 1 IN 1 D, ORAL : 50 MG, 1 IN 1 D, ORAL : 100 MG, 1 IN 1 D, ORAL
     Route: 048
     Dates: start: 20060901

REACTIONS (2)
  - DEEP VEIN THROMBOSIS [None]
  - IMPAIRED HEALING [None]
